FAERS Safety Report 15544265 (Version 1)
Quarter: 2018Q4

REPORT INFORMATION
  Report Type: Spontaneous
  Country: GR (occurrence: GR)
  Receive Date: 20181024
  Receipt Date: 20181024
  Transmission Date: 20190205
  Serious: Yes (Other)
  Sender: FDA-Public Use
  Company Number: GR-ROCHE-2201230

PATIENT
  Age: 64 Year
  Sex: Female

DRUGS (1)
  1. VEMURAFENIB. [Suspect]
     Active Substance: VEMURAFENIB
     Indication: METASTATIC MALIGNANT MELANOMA
     Route: 065

REACTIONS (8)
  - Mitral valve incompetence [Recovered/Resolved]
  - Tricuspid valve incompetence [Recovered/Resolved]
  - Atrial enlargement [Recovered/Resolved]
  - Pulmonary hypertension [Recovered/Resolved]
  - Bundle branch block left [Recovered/Resolved]
  - Ventricular enlargement [Recovered/Resolved]
  - Electrocardiogram QT prolonged [Recovered/Resolved]
  - Cardiac failure congestive [Recovering/Resolving]
